FAERS Safety Report 6812802-2 (Version None)
Quarter: 2010Q3

REPORT INFORMATION
  Report Type: 
  Country: None (occurrence: None)
  Receive Date: 20100701
  Receipt Date: 20100621
  Transmission Date: 20110219
  Serious: Yes (Life-Threatening)
  Sender: FDA-Public Use
  Company Number: B0662904A

PATIENT
  Sex: Female

DRUGS (2)
  1. AUGMENTIN '125' [Suspect]
     Indication: BRONCHITIS
     Route: 048
     Dates: start: 20100406, end: 20100407
  2. AMBROXOL HYDROCHLORIDE [Suspect]
     Indication: BRONCHITIS
     Dosage: 10ML PER DAY
     Route: 048
     Dates: start: 20100406, end: 20100407

REACTIONS (5)
  - ABDOMINAL PAIN [None]
  - DYSPNOEA [None]
  - ERYTHEMA [None]
  - PALATAL OEDEMA [None]
  - RHINITIS [None]
